FAERS Safety Report 14756236 (Version 1)
Quarter: 2018Q2

REPORT INFORMATION
  Report Type: Report from Study
  Country: None (occurrence: CA)
  Receive Date: 20180413
  Receipt Date: 20180413
  Transmission Date: 20180711
  Serious: Yes (Hospitalization, Other)
  Sender: FDA-Public Use
  Company Number: CA-ABBVIE-18K-028-2319974-00

PATIENT
  Sex: Female

DRUGS (1)
  1. HUMIRA [Suspect]
     Active Substance: ADALIMUMAB
     Indication: CROHN^S DISEASE
     Route: 058
     Dates: start: 20170314, end: 2018

REACTIONS (7)
  - Food allergy [Recovered/Resolved]
  - Fall [Recovered/Resolved]
  - Sinusitis [Unknown]
  - Crohn^s disease [Unknown]
  - Intestinal obstruction [Recovering/Resolving]
  - Fungal infection [Unknown]
  - Facial bones fracture [Unknown]

NARRATIVE: CASE EVENT DATE: 2017
